FAERS Safety Report 17626572 (Version 5)
Quarter: 2020Q2

REPORT INFORMATION
  Report Type: Spontaneous
  Country: US (occurrence: US)
  Receive Date: 20200405
  Receipt Date: 20200623
  Transmission Date: 20200713
  Serious: Yes (Other)
  Sender: FDA-Public Use
  Company Number: NVSC2020US090807

PATIENT
  Age: 73 Year
  Sex: Female
  Weight: 61.24 kg

DRUGS (7)
  1. BEOVU [Suspect]
     Active Substance: BROLUCIZUMAB-DBLL
     Indication: AGE-RELATED MACULAR DEGENERATION
     Dosage: 0.05 ML, QMO
     Route: 047
     Dates: start: 20200116
  2. EYLEA [Concomitant]
     Active Substance: AFLIBERCEPT
     Indication: AGE-RELATED MACULAR DEGENERATION
     Dosage: 0.01 ML, QMO
     Route: 031
     Dates: start: 20131013
  3. EYLEA [Concomitant]
     Active Substance: AFLIBERCEPT
     Dosage: UNK
     Route: 065
     Dates: start: 20191120
  4. EYLEA [Concomitant]
     Active Substance: AFLIBERCEPT
     Dosage: UNK
     Route: 065
     Dates: start: 20190711
  5. EYLEA [Concomitant]
     Active Substance: AFLIBERCEPT
     Dosage: UNK
     Route: 065
     Dates: start: 20191010
  6. BEOVU [Suspect]
     Active Substance: BROLUCIZUMAB-DBLL
     Dosage: 1 DF, UNKNOWN
     Route: 047
     Dates: start: 20200129
  7. EYLEA [Concomitant]
     Active Substance: AFLIBERCEPT
     Dosage: UNK
     Route: 065
     Dates: start: 20190826

REACTIONS (8)
  - Retinal vascular occlusion [Recovering/Resolving]
  - Vitritis [Recovered/Resolved]
  - Eye inflammation [Unknown]
  - Metamorphopsia [Unknown]
  - Anterior chamber cell [Unknown]
  - Vision blurred [Unknown]
  - Conjunctivitis [Recovered/Resolved]
  - Retinal vasculitis [Recovering/Resolving]

NARRATIVE: CASE EVENT DATE: 20200116
